FAERS Safety Report 5079348-6 (Version None)
Quarter: 2006Q3

REPORT INFORMATION
  Report Type: 
  Country: None (occurrence: None)
  Receive Date: 20060814
  Receipt Date: 20060703
  Transmission Date: 20061208
  Serious: Yes (Death, Hospitalization, Other)
  Sender: FDA-Public Use
  Company Number: PHFR2006GB02142

PATIENT
  Age: 67 Year
  Sex: Male

DRUGS (5)
  1. CLOZARIL [Suspect]
     Indication: PARKINSON'S DISEASE
     Dosage: 12.5 MG/DAY
     Route: 048
     Dates: start: 20051109, end: 20060624
  2. APOMORPHINE [Concomitant]
     Route: 065
  3. SINEMET [Concomitant]
     Route: 065
  4. MADOPAR [Concomitant]
     Route: 065
  5. QUETIAPINE FUMARATE [Concomitant]
     Indication: PSYCHOTIC DISORDER
     Route: 065

REACTIONS (18)
  - BLOOD ELECTROLYTES ABNORMAL [None]
  - CLOSTRIDIAL INFECTION [None]
  - DEATH [None]
  - DEHYDRATION [None]
  - DYSPHAGIA [None]
  - FEEDING DISORDER [None]
  - HAEMOGLOBIN DECREASED [None]
  - HALLUCINATION [None]
  - LOWER RESPIRATORY TRACT INFECTION [None]
  - MALAISE [None]
  - MALNUTRITION [None]
  - NEUTROPENIA [None]
  - NEUTROPHIL COUNT DECREASED [None]
  - PARENTERAL NUTRITION [None]
  - PARKINSON'S DISEASE [None]
  - PLATELET COUNT DECREASED [None]
  - PNEUMONIA [None]
  - WHITE BLOOD CELL COUNT DECREASED [None]
